FAERS Safety Report 5331689-0 (Version None)
Quarter: 2007Q2

REPORT INFORMATION
  Report Type: 
  Country: None (occurrence: None)
  Receive Date: 20070516
  Receipt Date: 20070504
  Transmission Date: 20071010
  Serious: Yes (Other)
  Sender: FDA-Public Use
  Company Number: MC200700374

PATIENT
  Sex: Female
  Weight: 123.8 kg

DRUGS (1)
  1. ANGIOMAX [Suspect]
     Indication: PERCUTANEOUS CORONARY INTERVENTION
     Dosage: SEE IMAGE
     Route: 042
     Dates: start: 20070504, end: 20070504

REACTIONS (3)
  - CARDIAC PROCEDURE COMPLICATION [None]
  - COAGULATION TIME PROLONGED [None]
  - CORONARY ARTERY DISSECTION [None]
